FAERS Safety Report 21271611 (Version 3)
Quarter: 2024Q1

REPORT INFORMATION
  Report Type: Spontaneous
  Country: US (occurrence: US)
  Receive Date: 20220830
  Receipt Date: 20240305
  Transmission Date: 20240410
  Serious: No
  Sender: FDA-Public Use
  Company Number: US-TEVA-2022-US-2068451

PATIENT
  Age: 73 Year
  Sex: Female

DRUGS (1)
  1. DOCETAXEL [Suspect]
     Active Substance: DOCETAXEL\DOCETAXEL ANHYDROUS
     Indication: Breast cancer
     Route: 065
     Dates: start: 20190618, end: 20190820

REACTIONS (4)
  - Lacrimation increased [Unknown]
  - Dacryostenosis acquired [Unknown]
  - Lacrimal duct neoplasm [Unknown]
  - Dacryostenosis acquired [Unknown]
